FAERS Safety Report 18957356 (Version 1)
Quarter: 2021Q1

REPORT INFORMATION
  Report Type: Spontaneous
  Country: US (occurrence: US)
  Receive Date: 20210301
  Receipt Date: 20210301
  Transmission Date: 20210420
  Serious: No
  Sender: FDA-Public Use
  Company Number: None

PATIENT
  Age: 11 Year
  Sex: Female
  Weight: 44.55 kg

DRUGS (2)
  1. PROBIOTIC [Concomitant]
     Active Substance: PROBIOTICS NOS
  2. METHYLPHENIDATE ER 54 MG [Suspect]
     Active Substance: METHYLPHENIDATE
     Indication: ATTENTION DEFICIT HYPERACTIVITY DISORDER
     Dosage: ?          QUANTITY:30 TABLET(S);?
     Route: 048
     Dates: start: 20210220

REACTIONS (4)
  - Product substitution issue [None]
  - Disturbance in attention [None]
  - Anger [None]
  - Drug ineffective [None]
